FAERS Safety Report 11337500 (Version 1)
Quarter: 2015Q3

REPORT INFORMATION
  Report Type: Spontaneous
  Country: US (occurrence: US)
  Receive Date: 20150803
  Receipt Date: 20150803
  Transmission Date: 20151125
  Serious: Yes (Other)
  Sender: FDA-Public Use
  Company Number: US-ELI_LILLY_AND_COMPANY-US200906005235

PATIENT
  Age: 32 Year
  Sex: Male

DRUGS (4)
  1. ZYPREXA ZYDIS [Suspect]
     Active Substance: OLANZAPINE
     Dosage: 20 MG, UNK
     Dates: start: 200901, end: 200906
  2. TRILEPTAL [Concomitant]
     Active Substance: OXCARBAZEPINE
     Dosage: 10 MG, UNK
  3. NEURONTIN [Concomitant]
     Active Substance: GABAPENTIN
  4. ZYPREXA [Suspect]
     Active Substance: OLANZAPINE
     Dosage: UNK, UNK
     Dates: start: 2007, end: 200901

REACTIONS (1)
  - Diabetic coma [Unknown]

NARRATIVE: CASE EVENT DATE: 200906
